FAERS Safety Report 11540476 (Version 1)
Quarter: 2015Q3

REPORT INFORMATION
  Report Type: Spontaneous
  Country: US (occurrence: US)
  Receive Date: 20150923
  Receipt Date: 20150923
  Transmission Date: 20151125
  Serious: No
  Sender: FDA-Public Use
  Company Number: US-BEH-2014047598

PATIENT
  Sex: Female
  Weight: 103 kg

DRUGS (16)
  1. ADVAIR 250-50 DISKUS [Concomitant]
  2. DIPHENHYDRAMINE. [Concomitant]
     Active Substance: DIPHENHYDRAMINE
  3. EPI-PEN AUTOINJECTOR [Concomitant]
  4. SODIUM CHLORIDE 0.9% [Concomitant]
     Active Substance: SODIUM CHLORIDE
  5. NEXIUM DR 40 MG CAPSULE [Concomitant]
  6. LORAZEPAM 1 MG TABLET [Concomitant]
  7. CO Q-10 100MG CAPSULE [Concomitant]
  8. EPI-PEN AUTOINJECTOR [Concomitant]
  9. ZOLOFT 100 MG TABLET [Concomitant]
  10. PROAIR HFA 90 MCG INHALER [Concomitant]
  11. PRIVIGEN [Suspect]
     Active Substance: HUMAN IMMUNOGLOBULIN G
     Route: 042
  12. PRAVASTATIN SODIUM 40MG TAB [Concomitant]
  13. PRIVIGEN [Suspect]
     Active Substance: HUMAN IMMUNOGLOBULIN G
     Indication: HYPOGAMMAGLOBULINAEMIA
     Dosage: FREQUENCY: EVERY 28 DAYS
     Route: 042
  14. ASPIRIN 325 MG TABLET [Concomitant]
  15. COMPLETE MULTIVITAMIN TAB [Concomitant]
  16. BYSTOLICS 5 MG [Concomitant]

REACTIONS (1)
  - Cystitis [Unknown]
